FAERS Safety Report 17408665 (Version 2)
Quarter: 2020Q3

REPORT INFORMATION
  Report Type: Spontaneous
  Country: US (occurrence: US)
  Receive Date: 20200212
  Receipt Date: 20200924
  Transmission Date: 20201102
  Serious: Yes (Other)
  Sender: FDA-Public Use
  Company Number: US-VERTEX PHARMACEUTICALS-2020-002559

PATIENT
  Age: 52 Year
  Sex: Male
  Weight: 67 kg

DRUGS (21)
  1. LORATADINE. [Concomitant]
     Active Substance: LORATADINE
  2. CLEARLAX [Concomitant]
     Active Substance: POLYETHYLENE GLYCOL 3350
     Dosage: 17 GRAM
  3. TURMERIC [CURCUMA LONGA ROOT] [Concomitant]
  4. TRIKAFTA [Suspect]
     Active Substance: ELEXACAFTOR\IVACAFTOR\TEZACAFTOR
     Indication: CYSTIC FIBROSIS
     Dosage: 2 TABS (100MG ELEXA/ 50MG TEZA/ 75MG IVA) AM AND 1 TAB (150MG IVA) PM
     Route: 048
     Dates: start: 20191121
  5. SENNA LEAF [Concomitant]
     Active Substance: SENNA LEAF
  6. AZITHROMYCIN ANHYDROUS. [Concomitant]
     Active Substance: AZITHROMYCIN ANHYDROUS
  7. SELENIUM [Concomitant]
     Active Substance: SELENIUM
  8. DOCUSATE SODIUM. [Concomitant]
     Active Substance: DOCUSATE SODIUM
  9. TOBI PODHALER [Concomitant]
     Active Substance: TOBRAMYCIN
     Dosage: 28 MG
  10. IBUPROFEN. [Concomitant]
     Active Substance: IBUPROFEN
  11. CAYSTON [Concomitant]
     Active Substance: AZTREONAM
  12. VENTOLINE [SALBUTAMOL SULFATE] [Concomitant]
     Active Substance: ALBUTEROL SULFATE
  13. COLLAGEN [Concomitant]
     Active Substance: COLLAGEN
  14. CREON [Concomitant]
     Active Substance: PANCRELIPASE AMYLASE\PANCRELIPASE LIPASE\PANCRELIPASE PROTEASE
  15. TRESIBA [Concomitant]
     Active Substance: INSULIN DEGLUDEC
  16. OMEGA 3 [FISH OIL] [Concomitant]
     Active Substance: FISH OIL
  17. OXYCODONE AND ACETAMINOPHEN [Concomitant]
     Active Substance: ACETAMINOPHEN\OXYCODONE HYDROCHLORIDE
  18. HUMALOG [Concomitant]
     Active Substance: INSULIN LISPRO
  19. SODIUM CHLORIDE. [Concomitant]
     Active Substance: SODIUM CHLORIDE
  20. ANASTROZOLE. [Concomitant]
     Active Substance: ANASTROZOLE
  21. MELATONIN [Concomitant]
     Active Substance: MELATONIN

REACTIONS (2)
  - Shoulder operation [Recovering/Resolving]
  - Pain in extremity [Not Recovered/Not Resolved]

NARRATIVE: CASE EVENT DATE: 20191226
